FAERS Safety Report 11869909 (Version 1)
Quarter: 2015Q4

REPORT INFORMATION
  Report Type: Spontaneous
  Country: US (occurrence: US)
  Receive Date: 20151228
  Receipt Date: 20151228
  Transmission Date: 20160305
  Serious: Yes (Hospitalization)
  Sender: FDA-Public Use
  Company Number: US-BEH-2015057025

PATIENT
  Age: 54 Year
  Sex: Female
  Weight: 73 kg

DRUGS (23)
  1. EPIPEN [Concomitant]
     Active Substance: EPINEPHRINE
  2. CARDIZEM [Concomitant]
     Active Substance: DILTIAZEM HYDROCHLORIDE
  3. XANAX [Concomitant]
     Active Substance: ALPRAZOLAM
  4. AZELASTINE [Concomitant]
     Active Substance: AZELASTINE
  5. CLARITIN [Concomitant]
     Active Substance: LORATADINE
  6. OXYGEN. [Concomitant]
     Active Substance: OXYGEN
  7. CALCIUM [Concomitant]
     Active Substance: CALCIUM
  8. DIPHENHYDRAMINE. [Concomitant]
     Active Substance: DIPHENHYDRAMINE
  9. FLAXSEED [Concomitant]
     Active Substance: FLAX SEED
  10. LIDOCAINE. [Concomitant]
     Active Substance: LIDOCAINE
  11. XOPENEX [Concomitant]
     Active Substance: LEVALBUTEROL HYDROCHLORIDE
  12. SINGULAIR [Concomitant]
     Active Substance: MONTELUKAST SODIUM
  13. MARINOL [Concomitant]
     Active Substance: DRONABINOL
  14. ZYRTEC [Concomitant]
     Active Substance: CETIRIZINE HYDROCHLORIDE
  15. MAGNESIUM [Concomitant]
     Active Substance: MAGNESIUM
  16. MELATONIN [Concomitant]
     Active Substance: MELATONIN
  17. ASPIRIN. [Concomitant]
     Active Substance: ASPIRIN
  18. FLONASE [Concomitant]
     Active Substance: FLUTICASONE PROPIONATE
  19. SPIRIVA [Concomitant]
     Active Substance: TIOTROPIUM BROMIDE MONOHYDRATE
  20. ZEMAIRA [Suspect]
     Active Substance: .ALPHA.1-PROTEINASE INHIBITOR HUMAN
     Indication: ALPHA-1 ANTI-TRYPSIN DEFICIENCY
     Dosage: 1048 MG/VL
     Route: 042
     Dates: start: 20090107
  21. ZOLOFT [Concomitant]
     Active Substance: SERTRALINE HYDROCHLORIDE
  22. SODIUM CHLORIDE. [Concomitant]
     Active Substance: SODIUM CHLORIDE
  23. ALBUTEROL. [Concomitant]
     Active Substance: ALBUTEROL

REACTIONS (1)
  - Unevaluable event [Recovered/Resolved]

NARRATIVE: CASE EVENT DATE: 20151209
